FAERS Safety Report 9614048 (Version 6)
Quarter: 2014Q1

REPORT INFORMATION
  Report Type: Spontaneous
  Country: US (occurrence: US)
  Receive Date: 20131011
  Receipt Date: 20140330
  Transmission Date: 20141002
  Serious: Yes (Other)
  Sender: FDA-Public Use
  Company Number: US-009507513-1310USA002795

PATIENT
  Age: 42 Year
  Sex: Male
  Weight: 86.17 kg

DRUGS (5)
  1. PEGINTRON [Suspect]
     Indication: HEPATITIS C
     Dosage: 0.5 ML, ONCE A WEEK, REDIPEN
     Route: 058
     Dates: start: 20131002, end: 20140312
  2. REBETOL [Suspect]
     Indication: HEPATITIS C
     Dosage: 3 PILLS, BID (TWICE A DAY)
     Route: 048
     Dates: start: 20131002, end: 20140312
  3. REBETOL [Suspect]
     Dosage: 3 PILLS, QPM (EVERY EVENING)
     Route: 048
     Dates: start: 201311, end: 20140305
  4. INCIVEK [Suspect]
     Indication: HEPATITIS C
     Dosage: 1 DF, Q8H (EVERY EIGHT HOURS)
     Route: 048
     Dates: start: 20130102, end: 20140312
  5. FENOFIBRATE [Concomitant]
     Indication: BLOOD CHOLESTEROL INCREASED
     Dosage: 1 DF, DAILY

REACTIONS (36)
  - Hepatic pain [Unknown]
  - Chills [Recovering/Resolving]
  - Tremor [Recovering/Resolving]
  - Pain [Recovering/Resolving]
  - Pyrexia [Unknown]
  - Headache [Unknown]
  - Dry mouth [Unknown]
  - Rash erythematous [Recovering/Resolving]
  - Pruritus [Not Recovered/Not Resolved]
  - Hyperhidrosis [Unknown]
  - Drug dose omission [Unknown]
  - Extra dose administered [Unknown]
  - Fatigue [Not Recovered/Not Resolved]
  - Memory impairment [Not Recovered/Not Resolved]
  - Influenza [Recovering/Resolving]
  - Weight increased [Unknown]
  - Memory impairment [Recovering/Resolving]
  - Pain [Recovering/Resolving]
  - Influenza like illness [Recovering/Resolving]
  - Red blood cell count decreased [Unknown]
  - Dyspnoea [Recovering/Resolving]
  - Adverse drug reaction [Unknown]
  - Haemoglobin decreased [Unknown]
  - Dyspnoea [Unknown]
  - Skin exfoliation [Unknown]
  - Erythema [Unknown]
  - Middle insomnia [Unknown]
  - Poor quality sleep [Unknown]
  - Pain in extremity [Unknown]
  - Rash [Unknown]
  - Scratch [Unknown]
  - Malaise [Unknown]
  - Rash [Unknown]
  - Rash [Unknown]
  - Alopecia [Unknown]
  - Madarosis [Unknown]
